FAERS Safety Report 7620625-X (Version None)
Quarter: 2011Q3

REPORT INFORMATION
  Report Type: 
  Country: None (occurrence: None)
  Receive Date: 20110719
  Receipt Date: 20110713
  Transmission Date: 20111222
  Serious: Yes (Other)
  Sender: FDA-Public Use
  Company Number: US-ROCHE-790336

PATIENT

DRUGS (3)
  1. PEGASYS [Suspect]
     Route: 065
  2. TELAPREVIR [Suspect]
     Route: 065
  3. RIBAVIRIN [Suspect]
     Route: 065

REACTIONS (6)
  - MALAISE [None]
  - BONE INFARCTION [None]
  - PAIN IN EXTREMITY [None]
  - HEPATITIS C [None]
  - HAEMOGLOBIN DECREASED [None]
  - DEHYDRATION [None]
